FAERS Safety Report 16035405 (Version 1)
Quarter: 2019Q1

REPORT INFORMATION
  Report Type: Spontaneous
  Country: US (occurrence: US)
  Receive Date: 20190305
  Receipt Date: 20190305
  Transmission Date: 20190418
  Serious: No
  Sender: FDA-Public Use
  Company Number: US-SA-2019SA060041

PATIENT

DRUGS (4)
  1. ENBREL [Suspect]
     Active Substance: ETANERCEPT
  2. ARAVA [Suspect]
     Active Substance: LEFLUNOMIDE
  3. METHOTREXATE. [Suspect]
     Active Substance: METHOTREXATE
     Indication: RHEUMATOID ARTHRITIS
     Dosage: UNK
     Dates: start: 198703, end: 201111
  4. HUMIRA [Suspect]
     Active Substance: ADALIMUMAB

REACTIONS (3)
  - Fatigue [Unknown]
  - Needle issue [Unknown]
  - Diarrhoea [Unknown]
